FAERS Safety Report 6196734-1 (Version None)
Quarter: 2009Q2

REPORT INFORMATION
  Report Type: 
  Country: None (occurrence: None)
  Receive Date: 20090520
  Receipt Date: 20090512
  Transmission Date: 20091009
  Serious: Yes (Death, Life-Threatening, Hospitalization)
  Sender: FDA-Public Use
  Company Number: CH-MERCK-0905CHE00002

PATIENT
  Age: 67 Year
  Sex: Male
  Weight: 114 kg

DRUGS (12)
  1. JANUMET [Suspect]
     Indication: TYPE 2 DIABETES MELLITUS
     Route: 048
     Dates: start: 20081201, end: 20090408
  2. METOPROLOL SUCCINATE [Concomitant]
     Route: 048
  3. CANDESARTAN CILEXETIL AND HYDROCHLOROTHIAZIDE [Concomitant]
     Route: 048
  4. CLOPIDOGREL BISULFATE [Concomitant]
     Route: 048
  5. ATORVASTATIN CALCIUM [Concomitant]
     Route: 048
  6. DOMPERIDONE [Concomitant]
     Route: 048
  7. ESOMEPRAZOLE MAGNESIUM [Concomitant]
     Route: 048
  8. ALLOPURINOL [Concomitant]
     Route: 048
  9. INSULIN GLARGINE [Concomitant]
     Route: 048
  10. INSULIN LISPRO [Concomitant]
     Route: 058
  11. GREEN-LIPPED MUSSEL EXTRACT [Concomitant]
     Route: 048
  12. MINERALS (UNSPECIFIED) AND VITAMINS (UNSPECIFIED) [Concomitant]
     Route: 048

REACTIONS (3)
  - AORTIC VALVE REPLACEMENT [None]
  - CARDIAC ARREST [None]
  - RESUSCITATION [None]
